FAERS Safety Report 8458916-5 (Version None)
Quarter: 2012Q2

REPORT INFORMATION
  Report Type: 
  Country: None (occurrence: None)
  Receive Date: 20120622
  Receipt Date: 20120615
  Transmission Date: 20120825
  Serious: Yes (Hospitalization, Other)
  Sender: FDA-Public Use
  Company Number: JP-ROCHE-1061954

PATIENT
  Sex: Female
  Weight: 82 kg

DRUGS (11)
  1. LASIX [Concomitant]
  2. RABEPRAZOLE SODIUM [Concomitant]
  3. SYMBICORT [Concomitant]
     Dates: start: 20120106
  4. MONTELUKAST SODIUM [Concomitant]
  5. PREDNISOLONE [Concomitant]
     Dates: start: 20120116
  6. XOLAIR [Suspect]
     Indication: ASTHMA
     Route: 058
     Dates: start: 20111118, end: 20111118
  7. ZYRTEC [Concomitant]
  8. MEPTIN [Concomitant]
  9. ADVAIR DISKUS 100/50 [Concomitant]
     Dates: start: 20120105
  10. UNIPHYL [Concomitant]
  11. ALFAROL [Concomitant]
     Dates: start: 20120515

REACTIONS (3)
  - LIP OEDEMA [None]
  - OROPHARYNGEAL DISCOMFORT [None]
  - ASTHMA [None]
